FAERS Safety Report 5176714-5 (Version None)
Quarter: 2006Q4

REPORT INFORMATION
  Report Type: 
  Country: None (occurrence: None)
  Receive Date: 20061211
  Receipt Date: 20061211
  Transmission Date: 20070319
  Serious: Yes (Hospitalization)
  Sender: FDA-Public Use
  Company Number: None

PATIENT
  Age: 55 Year
  Sex: Female
  Weight: 39.0093 kg

DRUGS (4)
  1. AZATHIOPRINE [Suspect]
     Indication: CROHN'S DISEASE
     Dosage: DOSE DAILY BY MOUTH
     Route: 048
     Dates: start: 20061117, end: 20061205
  2. PREDNISONE TAB [Concomitant]
  3. CLONAZEPAM [Concomitant]
  4. ACETAMINOPHEN [Concomitant]

REACTIONS (7)
  - DEHYDRATION [None]
  - DIARRHOEA [None]
  - GASTROENTERITIS [None]
  - MALAISE [None]
  - NIGHT SWEATS [None]
  - PYREXIA [None]
  - VOMITING [None]
